FAERS Safety Report 23202663 (Version 1)
Quarter: 2023Q4

REPORT INFORMATION
  Report Type: Report from Study
  Country: DE (occurrence: DE)
  Receive Date: 20231120
  Receipt Date: 20231120
  Transmission Date: 20240109
  Serious: Yes (Death, Other)
  Sender: FDA-Public Use
  Company Number: DE-JNJFOC-20230818495

PATIENT
  Age: 8 Decade

DRUGS (1)
  1. TECLISTAMAB [Suspect]
     Active Substance: TECLISTAMAB
     Indication: Plasma cell myeloma
     Route: 058
     Dates: end: 20230501

REACTIONS (5)
  - Pneumonia [Fatal]
  - Cachexia [Fatal]
  - COVID-19 [Fatal]
  - Superinfection bacterial [Fatal]
  - Salmonellosis [Unknown]

NARRATIVE: CASE EVENT DATE: 20220101
